FAERS Safety Report 21881286 (Version 7)
Quarter: 2024Q1

REPORT INFORMATION
  Report Type: Report from Study
  Country: CA (occurrence: CA)
  Receive Date: 20230119
  Receipt Date: 20240104
  Transmission Date: 20240410
  Serious: Yes (Other)
  Sender: FDA-Public Use
  Company Number: CA-JNJFOC-20230127276

PATIENT
  Age: 12 Year
  Sex: Male
  Weight: 48 kg

DRUGS (6)
  1. REMICADE [Suspect]
     Active Substance: INFLIXIMAB
     Indication: Crohn^s disease
     Dosage: ON 12-JAN-2023, THE PATIENT RECEIVED 1ST INFLIXIMAB, RECOMBINANT INFUSION AT DOSE OF 200 MG AT 0, 2
     Route: 041
     Dates: start: 20230112
  2. REMICADE [Suspect]
     Active Substance: INFLIXIMAB
     Route: 041
     Dates: start: 20231218
  3. REMICADE [Suspect]
     Active Substance: INFLIXIMAB
     Route: 041
  4. BENADRYL [Suspect]
     Active Substance: DIPHENHYDRAMINE HYDROCHLORIDE
     Indication: Infusion related reaction
     Route: 065
     Dates: start: 2023
  5. CETIRIZINE HYDROCHLORIDE [Concomitant]
     Active Substance: CETIRIZINE HYDROCHLORIDE
     Indication: Product used for unknown indication
     Route: 065
  6. HYDROCORTISONE [Concomitant]
     Active Substance: HYDROCORTISONE
     Indication: Premedication
     Dates: start: 20231218

REACTIONS (13)
  - Sneezing [Recovered/Resolved]
  - Cough [Unknown]
  - Infusion related reaction [Recovered/Resolved]
  - Rhinorrhoea [Recovered/Resolved]
  - Eye pruritus [Recovered/Resolved]
  - Nasal congestion [Recovered/Resolved]
  - Urine output increased [Unknown]
  - Penile pain [Unknown]
  - Urticaria [Recovered/Resolved]
  - Pyrexia [Recovered/Resolved]
  - Incorrect drug administration rate [Unknown]
  - Weight increased [Unknown]
  - Drug level below therapeutic [Unknown]

NARRATIVE: CASE EVENT DATE: 20230101
